FAERS Safety Report 11010387 (Version 1)
Quarter: 2015Q2

REPORT INFORMATION
  Report Type: Spontaneous
  Country: US (occurrence: US)
  Receive Date: 20150410
  Receipt Date: 20150410
  Transmission Date: 20150821
  Serious: Yes (Other)
  Sender: FDA-Public Use
  Company Number: US-GLAXOSMITHKLINE-US2015GSK046921

PATIENT
  Sex: Female
  Weight: 56.69 kg

DRUGS (1)
  1. VOTRIENT [Suspect]
     Active Substance: PAZOPANIB HYDROCHLORIDE
     Indication: LEIOMYOSARCOMA
     Dosage: 800 MG, QD
     Route: 048
     Dates: start: 20150317

REACTIONS (1)
  - Radiotherapy [Unknown]

NARRATIVE: CASE EVENT DATE: 2015
